FAERS Safety Report 6546684-3 (Version None)
Quarter: 2010Q1

REPORT INFORMATION
  Report Type: 
  Country: None (occurrence: None)
  Receive Date: 20100119
  Receipt Date: 20100104
  Transmission Date: 20100710
  Serious: Yes (Hospitalization, Other)
  Sender: FDA-Public Use
  Company Number: 2009AC000415

PATIENT
  Age: 59 Year
  Sex: Female
  Weight: 86.5463 kg

DRUGS (7)
  1. DIGOXIN [Suspect]
     Dosage: PO
     Route: 048
     Dates: start: 19760101
  2. TOPROL-XL [Concomitant]
  3. AMIODARONE [Concomitant]
  4. LASIX [Concomitant]
  5. COUMADIN [Concomitant]
  6. CELEXA [Concomitant]
  7. AMBIEN [Concomitant]

REACTIONS (21)
  - ATRIAL FIBRILLATION [None]
  - ATRIAL SEPTAL DEFECT [None]
  - BRAIN NATRIURETIC PEPTIDE INCREASED [None]
  - CARDIAC DISORDER [None]
  - CARDIAC FAILURE CONGESTIVE [None]
  - CARDIAC FLUTTER [None]
  - CARDIAC VALVE DISEASE [None]
  - CHEST PAIN [None]
  - ECONOMIC PROBLEM [None]
  - EXOSTOSIS [None]
  - FEELING ABNORMAL [None]
  - HYPOTENSION [None]
  - INJURY [None]
  - LYMPHADENOPATHY [None]
  - MITRAL VALVE INCOMPETENCE [None]
  - MITRAL VALVE STENOSIS [None]
  - MYOCARDIAL ISCHAEMIA [None]
  - PALPITATIONS [None]
  - PLEURAL EFFUSION [None]
  - TREATMENT NONCOMPLIANCE [None]
  - VENTRICULAR EXTRASYSTOLES [None]
